FAERS Safety Report 24869538 (Version 1)
Quarter: 2025Q1

REPORT INFORMATION
  Report Type: Spontaneous
  Country: US (occurrence: US)
  Receive Date: 20250121
  Receipt Date: 20250121
  Transmission Date: 20250409
  Serious: Yes (Other)
  Sender: FRESENIUS KABI
  Company Number: US-FreseniusKabi-FK202500449

PATIENT
  Age: 24 Year
  Sex: Male

DRUGS (2)
  1. SMOFLIPID [Suspect]
     Active Substance: FISH OIL\MEDIUM-CHAIN TRIGLYCERIDES\OLIVE OIL\SOYBEAN OIL
     Indication: Product used for unknown indication
  2. OMEGAVEN [Suspect]
     Active Substance: FISH OIL
     Indication: Hyperbilirubinaemia

REACTIONS (6)
  - Acute kidney injury [Unknown]
  - Colitis ulcerative [Unknown]
  - Gilbert^s syndrome [Unknown]
  - Condition aggravated [Unknown]
  - Blood bilirubin increased [Unknown]
  - Off label use [Unknown]
